FAERS Safety Report 11141725 (Version 1)
Quarter: 2015Q2

REPORT INFORMATION
  Report Type: Spontaneous
  Country: CA (occurrence: CA)
  Receive Date: 20150527
  Receipt Date: 20150527
  Transmission Date: 20150821
  Serious: Yes (Life-Threatening)
  Sender: FDA-Public Use
  Company Number: CA-PFIZER INC-2015178614

PATIENT
  Age: 67 Year
  Sex: Female
  Weight: 121 kg

DRUGS (11)
  1. ENOXAPARIN [Concomitant]
     Active Substance: ENOXAPARIN
  2. QUETIAPINE [Concomitant]
     Active Substance: QUETIAPINE
  3. SENNA [Concomitant]
     Active Substance: SENNA LEAF\SENNOSIDES\SENNOSIDES A AND B
  4. CIPRO [Concomitant]
     Active Substance: CIPROFLOXACIN HYDROCHLORIDE
  5. FERROUS FUMARATE [Concomitant]
     Active Substance: FERROUS FUMARATE
  6. VITAMIN C [Concomitant]
     Active Substance: ASCORBIC ACID
  7. DOCUSATE [Concomitant]
     Active Substance: DOCUSATE
  8. GABAPENTIN. [Concomitant]
     Active Substance: GABAPENTIN
  9. ZYVOXAM [Suspect]
     Active Substance: LINEZOLID
     Indication: ENTEROCOCCAL INFECTION
     Dosage: 600 MG, 2X/DAY
     Route: 048
  10. RISPERIDONE. [Concomitant]
     Active Substance: RISPERIDONE
  11. WARFARIN [Concomitant]
     Active Substance: WARFARIN

REACTIONS (2)
  - Neutrophil count decreased [Recovered/Resolved]
  - White blood cell count decreased [Recovered/Resolved]
